FAERS Safety Report 8845812 (Version 1)
Quarter: 2012Q4

REPORT INFORMATION
  Report Type: 
  Country: CA (occurrence: CA)
  Receive Date: 20121017
  Receipt Date: 20121017
  Transmission Date: 20130627
  Serious: Yes (Life-Threatening, Other)
  Sender: FDA-Public Use
  Company Number: CHPA2012CA021749

PATIENT
  Age: 24 Year
  Sex: Female

DRUGS (2)
  1. AMMONIUM CARBONATE\MENTHOL\POTASSIUM BICARBONATE [Suspect]
     Indication: COUGH
     Dosage: 1 TSP, at night
     Route: 048
     Dates: start: 1967, end: 20121007
  2. CHLORPHENIRAMINE\DEXTROMETHORPHAN [Suspect]
     Indication: COUGH
     Route: 048

REACTIONS (9)
  - Systemic lupus erythematosus [Not Recovered/Not Resolved]
  - Intestinal haemorrhage [Recovered/Resolved]
  - Skin sensitisation [Unknown]
  - Lung disorder [Not Recovered/Not Resolved]
  - Renal disorder [Not Recovered/Not Resolved]
  - Atypical pneumonia [Not Recovered/Not Resolved]
  - Viral infection [Not Recovered/Not Resolved]
  - Rheumatoid arthritis [Not Recovered/Not Resolved]
  - Grand mal convulsion [Not Recovered/Not Resolved]
